FAERS Safety Report 7901958-6 (Version None)
Quarter: 2011Q4

REPORT INFORMATION
  Report Type: 
  Country: None (occurrence: None)
  Receive Date: 20111108
  Receipt Date: 20111030
  Transmission Date: 20120403
  Serious: Yes (Hospitalization)
  Sender: FDA-Public Use
  Company Number: NZ-B.I. PHARMACEUTICALS,INC./RIDGEFIELD-2011-AU-00809AU

PATIENT
  Sex: Male

DRUGS (4)
  1. CILAZAPRIL [Concomitant]
     Dosage: 5 MG
     Route: 048
  2. PRADAXA [Suspect]
     Dosage: 300 MG
     Route: 048
     Dates: start: 20110712, end: 20110802
  3. METFFORMIN HYDROCHLORIDE [Concomitant]
     Route: 048
     Dates: start: 20110718
  4. ACETYLSALICYLIC ACID SRT [Concomitant]
     Dosage: 100 MG
     Route: 048
     Dates: end: 20110802

REACTIONS (8)
  - CHEST DISCOMFORT [None]
  - DIZZINESS [None]
  - CHEST PAIN [None]
  - ACUTE MYOCARDIAL INFARCTION [None]
  - HAEMOGLOBIN DECREASED [None]
  - DYSPNOEA [None]
  - MELAENA [None]
  - GASTRIC ULCER [None]
